FAERS Safety Report 6756513-0 (Version None)
Quarter: 2010Q2

REPORT INFORMATION
  Report Type: 
  Country: None (occurrence: None)
  Receive Date: 20100604
  Receipt Date: 20100527
  Transmission Date: 20101027
  Serious: Yes (Hospitalization)
  Sender: FDA-Public Use
  Company Number: B0657432A

PATIENT
  Sex: Male
  Weight: 3.99 kg

DRUGS (1)
  1. RELENZA [Suspect]
     Dates: start: 20091001, end: 20091001

REACTIONS (4)
  - ANAEMIA NEONATAL [None]
  - BONE MARROW FAILURE [None]
  - NEUTROPENIA NEONATAL [None]
  - THROMBOCYTOPENIA NEONATAL [None]
